FAERS Safety Report 7678725-4 (Version None)
Quarter: 2011Q3

REPORT INFORMATION
  Report Type: 
  Country: None (occurrence: None)
  Receive Date: 20110811
  Receipt Date: 20110802
  Transmission Date: 20111222
  Serious: Yes (Other)
  Sender: FDA-Public Use
  Company Number: IL-GENENTECH-322395

PATIENT
  Sex: Male

DRUGS (7)
  1. INTERFERON [Concomitant]
     Indication: HEPATITIS C
     Dosage: UNK
  2. CYCLOPHOSPHAMIDE [Concomitant]
     Indication: PRODUCT USED FOR UNKNOWN INDICATION
     Dosage: UNK
  3. DAUNORUBICIN HCL [Concomitant]
     Indication: PRODUCT USED FOR UNKNOWN INDICATION
     Dosage: UNK
  4. ONCOVIN [Concomitant]
     Indication: PRODUCT USED FOR UNKNOWN INDICATION
     Dosage: UNK
  5. RIBAVIRIN [Concomitant]
     Indication: HEPATITIS C
     Dosage: UNK
  6. PREDNISOLONE [Concomitant]
     Indication: PRODUCT USED FOR UNKNOWN INDICATION
     Dosage: UNK
  7. MABTHERA [Suspect]
     Indication: LYMPHOMA
     Dosage: 800 MG, UNK
     Route: 065
     Dates: start: 20101026, end: 20101212

REACTIONS (1)
  - HEPATIC NEOPLASM MALIGNANT [None]
